FAERS Safety Report 4430054-8 (Version None)
Quarter: 2004Q3

REPORT INFORMATION
  Report Type: 
  Country: None (occurrence: None)
  Receive Date: 20040817
  Receipt Date: 20040812
  Transmission Date: 20050211
  Serious: Yes (Hospitalization)
  Sender: FDA-Public Use
  Company Number: KII-2002-0007974

PATIENT
  Sex: Male

DRUGS (2)
  1. OXYCONTIN [Suspect]
     Indication: DRUG USE FOR UNKNOWN INDICATION
     Dosage: 400 MG, Q12H, (SEE IMAGE)
  2. COCAINE (COCAINE) [Suspect]
     Indication: DRUG USE FOR UNKNOWN INDICATION

REACTIONS (5)
  - DRUG ABUSER [None]
  - DRUG WITHDRAWAL SYNDROME [None]
  - LABORATORY TEST ABNORMAL [None]
  - RIB FRACTURE [None]
  - ROAD TRAFFIC ACCIDENT [None]
